FAERS Safety Report 4962308-0 (Version None)
Quarter: 2006Q2

REPORT INFORMATION
  Report Type: 
  Country: None (occurrence: None)
  Receive Date: 20060404
  Receipt Date: 20060327
  Transmission Date: 20061013
  Serious: Yes (Life-Threatening)
  Sender: FDA-Public Use
  Company Number: ES-AVENTIS-200613196GDDC

PATIENT
  Age: 87 Year
  Sex: Male

DRUGS (1)
  1. AMARYL [Suspect]
     Indication: DIABETES MELLITUS
     Route: 048
     Dates: end: 20050224

REACTIONS (2)
  - HYPOGLYCAEMIA [None]
  - SYNCOPE [None]
